FAERS Safety Report 4525859-9 (Version None)
Quarter: 2004Q4

REPORT INFORMATION
  Report Type: 
  Country: None (occurrence: None)
  Receive Date: 20041124
  Receipt Date: 20031217
  Transmission Date: 20050328
  Serious: Yes (Hospitalization, Other)
  Sender: FDA-Public Use
  Company Number: 2003125458

PATIENT
  Sex: Female
  Weight: 97.5234 kg

DRUGS (2)
  1. TIKOSYN [Suspect]
     Indication: ATRIAL FIBRILLATION
     Dates: start: 20020901
  2. FUROSEMIDE [Concomitant]

REACTIONS (7)
  - ATRIAL FIBRILLATION [None]
  - BLOOD POTASSIUM DECREASED [None]
  - BLOOD PRESSURE INADEQUATELY CONTROLLED [None]
  - CHEST DISCOMFORT [None]
  - FEELING COLD [None]
  - PALPITATIONS [None]
  - TREMOR [None]
